APPROVED DRUG PRODUCT: RONDOMYCIN
Active Ingredient: METHACYCLINE HYDROCHLORIDE
Strength: EQ 280MG BASE
Dosage Form/Route: CAPSULE;ORAL
Application: A060641 | Product #002
Applicant: MEDPOINTE PHARMACEUTICALS MEDPOINTE HEALTHCARE INC
Approved: Approved Prior to Jan 1, 1982 | RLD: No | RS: No | Type: DISCN